FAERS Safety Report 12991943 (Version 5)
Quarter: 2019Q2

REPORT INFORMATION
  Report Type: Spontaneous
  Country: US (occurrence: US)
  Receive Date: 20161201
  Receipt Date: 20190513
  Transmission Date: 20190711
  Serious: No
  Sender: FDA-Public Use
  Company Number: US-PFIZER INC-2016558836

PATIENT
  Age: 84 Year
  Sex: Male

DRUGS (1)
  1. TOVIAZ [Suspect]
     Active Substance: FESOTERODINE FUMARATE
     Indication: BLADDER DISORDER
     Dosage: UNK
     Dates: start: 2016

REACTIONS (3)
  - Sleep disorder [Unknown]
  - Hypoacusis [Not Recovered/Not Resolved]
  - Micturition urgency [Not Recovered/Not Resolved]
